FAERS Safety Report 4793740-6 (Version None)
Quarter: 2005Q4

REPORT INFORMATION
  Report Type: 
  Country: None (occurrence: None)
  Receive Date: 20051006
  Receipt Date: 20050923
  Transmission Date: 20060501
  Serious: Yes (Hospitalization, Other)
  Sender: FDA-Public Use
  Company Number: 2005133972

PATIENT
  Age: 68 Year
  Sex: Male

DRUGS (12)
  1. DILANTIN [Suspect]
     Indication: ILL-DEFINED DISORDER
     Dosage: 320 (2 IN 1 D), ORAL
     Route: 048
  2. LOVENOX [Suspect]
     Indication: ILL-DEFINED DISORDER
  3. PRIMIDONE [Concomitant]
  4. AMOXICILLIN [Concomitant]
  5. INSULIN [Concomitant]
  6. TYLENOL W/ CODEINE [Concomitant]
  7. CALCITRIOL [Concomitant]
  8. MULTIVITAMIN [Concomitant]
  9. LANSOPRAZOLE [Concomitant]
  10. LACTULOSE [Concomitant]
  11. MIACALCIN [Concomitant]
  12. CALCIUM WITH VITAMIN D (CALCIUM PHOSPHATE, CALCIUM SODIUM LACTATE, ERG [Concomitant]

REACTIONS (4)
  - ANTICONVULSANT DRUG LEVEL DECREASED [None]
  - CONVULSION [None]
  - DRUG INTERACTION [None]
  - HIP ARTHROPLASTY [None]
